FAERS Safety Report 9341356 (Version 2)
Quarter: 2013Q3

REPORT INFORMATION
  Report Type: Spontaneous
  Country: NL (occurrence: NL)
  Receive Date: 20130611
  Receipt Date: 20130719
  Transmission Date: 20140515
  Serious: Yes (Death, Other)
  Sender: FDA-Public Use
  Company Number: NL-JNJFOC-20130520915

PATIENT
  Age: 64 Year
  Sex: Male

DRUGS (15)
  1. ZYTIGA [Suspect]
     Indication: PROSTATE CANCER
     Route: 048
     Dates: start: 20121024, end: 20121204
  2. ZYTIGA [Suspect]
     Indication: PROSTATE CANCER
     Route: 048
     Dates: start: 20121009, end: 20121024
  3. ZYTIGA [Suspect]
     Indication: PROSTATE CANCER
     Route: 048
     Dates: start: 20120717, end: 20121009
  4. DICLOFENAC [Concomitant]
     Indication: PAIN
     Route: 048
  5. PARACETAMOL [Concomitant]
     Indication: PAIN
     Route: 048
  6. PREDNISONE [Concomitant]
     Indication: PROSTATE CANCER METASTATIC
     Route: 048
  7. METOCLOPRAMIDE [Concomitant]
     Indication: NAUSEA
     Route: 048
  8. METFORMINE [Concomitant]
     Indication: DIABETES MELLITUS
     Route: 048
  9. DILTIAZEM [Concomitant]
     Indication: ANGINA PECTORIS
     Route: 048
  10. OMEPRAZOLE [Concomitant]
     Indication: DYSPEPSIA
     Route: 048
  11. PROMOCARD [Concomitant]
     Indication: ANGINA PECTORIS
     Route: 048
  12. ACETYLSALICYLIC ACID [Concomitant]
     Indication: PRODUCT USED FOR UNKNOWN INDICATION
     Route: 048
  13. MOVICOLON [Concomitant]
     Indication: CONSTIPATION
     Dosage: 12 SACHETS
     Route: 048
  14. ATORVASTATIN [Concomitant]
     Indication: HYPERCHOLESTEROLAEMIA
     Route: 048
  15. IRBESARTAN [Concomitant]
     Indication: HYPERTENSION
     Route: 048

REACTIONS (3)
  - Disease progression [Fatal]
  - Hepatic enzyme abnormal [Recovered/Resolved]
  - Serum ferritin increased [Unknown]
